FAERS Safety Report 14586738 (Version 1)
Quarter: 2018Q1

REPORT INFORMATION
  Report Type: Spontaneous
  Country: GB (occurrence: GB)
  Receive Date: 20180301
  Receipt Date: 20180301
  Transmission Date: 20180509
  Serious: Yes (Other)
  Sender: FDA-Public Use
  Company Number: GB-BAYER-2018-036948

PATIENT
  Sex: Female

DRUGS (1)
  1. BETAFERON [Suspect]
     Active Substance: INTERFERON BETA-1B
     Indication: MULTIPLE SCLEROSIS
     Dosage: 250 ?G, QOD
     Route: 058
     Dates: start: 20130423

REACTIONS (9)
  - Cough [None]
  - Lower respiratory tract infection [None]
  - Headache [None]
  - Drug dose omission [None]
  - Asthenia [None]
  - Pyrexia [None]
  - Sneezing [None]
  - Malaise [None]
  - Fatigue [None]
